FAERS Safety Report 18553169 (Version 1)
Quarter: 2020Q4

REPORT INFORMATION
  Report Type: Spontaneous
  Country: CN (occurrence: CN)
  Receive Date: 20201127
  Receipt Date: 20201127
  Transmission Date: 20210114
  Serious: Yes (Other)
  Sender: FDA-Public Use
  Company Number: CN-TOPROL-202000092

PATIENT
  Age: 87 Year
  Sex: Male
  Weight: 66 kg

DRUGS (1)
  1. BETALOC ZOK [Suspect]
     Active Substance: METOPROLOL SUCCINATE
     Indication: HYPERTENSION
     Route: 048
     Dates: start: 20201028, end: 20201103

REACTIONS (4)
  - Bradycardia [Recovering/Resolving]
  - Supraventricular extrasystoles [Unknown]
  - Bundle branch block right [Recovering/Resolving]
  - Atrial fibrillation [Unknown]

NARRATIVE: CASE EVENT DATE: 20201031
